FAERS Safety Report 11418691 (Version 3)
Quarter: 2015Q3

REPORT INFORMATION
  Report Type: Spontaneous
  Country: JP (occurrence: JP)
  Receive Date: 20150826
  Receipt Date: 20150922
  Transmission Date: 20151125
  Serious: Yes (Life-Threatening)
  Sender: FDA-Public Use
  Company Number: JP-009507513-1508JPN005634

PATIENT
  Age: 22 Year
  Sex: Male
  Weight: 71 kg

DRUGS (2)
  1. CUBICIN [Suspect]
     Active Substance: DAPTOMYCIN
     Indication: STAPHYLOCOCCAL INFECTION
  2. CUBICIN [Suspect]
     Active Substance: DAPTOMYCIN
     Indication: POST PROCEDURAL INFECTION
     Dosage: 284 MG/KG, QD
     Route: 041
     Dates: start: 20150724, end: 20150803

REACTIONS (2)
  - Dyspnoea [Unknown]
  - Toxic skin eruption [Recovered/Resolved]

NARRATIVE: CASE EVENT DATE: 20150803
